FAERS Safety Report 26064747 (Version 1)
Quarter: 2025Q4

REPORT INFORMATION
  Report Type: Spontaneous
  Country: US (occurrence: US)
  Receive Date: 20251119
  Receipt Date: 20251119
  Transmission Date: 20260117
  Serious: Yes (Death, Other)
  Sender: CHATTEM
  Company Number: US-OPELLA-2025OHG032816

PATIENT
  Sex: Female

DRUGS (1)
  1. GOLD BOND ORIGINAL STRENGTH [Suspect]
     Active Substance: MENTHOL
     Indication: Product used for unknown indication
     Route: 061

REACTIONS (6)
  - Cardiogenic shock [Fatal]
  - Respiratory failure [Fatal]
  - Sepsis [Fatal]
  - Mesothelioma malignant [Fatal]
  - Infection [Fatal]
  - Exposure to chemical pollution [Unknown]

NARRATIVE: CASE EVENT DATE: 20240601
